FAERS Safety Report 19617585 (Version 1)
Quarter: 2021Q3

REPORT INFORMATION
  Report Type: Spontaneous
  Country: US (occurrence: US)
  Receive Date: 20210727
  Receipt Date: 20210727
  Transmission Date: 20211014
  Serious: No
  Sender: FDA-Public Use
  Company Number: US-ABBVIE-21K-163-3917478-00

PATIENT
  Sex: Female

DRUGS (2)
  1. LUPRON [Suspect]
     Active Substance: LEUPROLIDE ACETATE
     Indication: PRODUCT USED FOR UNKNOWN INDICATION
     Route: 065
  2. ORILISSA [Suspect]
     Active Substance: ELAGOLIX SODIUM
     Indication: ENDOMETRIOSIS
     Route: 048
     Dates: start: 202105, end: 202105

REACTIONS (14)
  - Headache [Unknown]
  - Depression [Unknown]
  - Insomnia [Unknown]
  - Drug ineffective [Unknown]
  - Nausea [Unknown]
  - Pain [Recovering/Resolving]
  - Mood swings [Unknown]
  - Hot flush [Unknown]
  - Night sweats [Unknown]
  - Crying [Unknown]
  - Migraine [Unknown]
  - Arthralgia [Unknown]
  - Anxiety [Unknown]
  - Endometriosis [Unknown]

NARRATIVE: CASE EVENT DATE: 202105
